FAERS Safety Report 13611296 (Version 2)
Quarter: 2017Q2

REPORT INFORMATION
  Report Type: Spontaneous
  Country: GR (occurrence: GR)
  Receive Date: 20170605
  Receipt Date: 20170620
  Transmission Date: 20170830
  Serious: Yes (Hospitalization)
  Sender: FDA-Public Use
  Company Number: GR-PFIZER INC-2017237527

PATIENT
  Age: 16 Year
  Sex: Male

DRUGS (1)
  1. GENOTROPIN [Suspect]
     Active Substance: SOMATROPIN
     Dosage: 10.5 MG, UNK
     Dates: start: 201605

REACTIONS (4)
  - Proteinuria [Recovered/Resolved]
  - Albuminuria [Recovering/Resolving]
  - Viral infection [Recovering/Resolving]
  - Haematuria [Recovering/Resolving]
